FAERS Safety Report 7142427 (Version 5)
Quarter: 2013Q1

REPORT INFORMATION
  Report Type: Report from Study
  Country: US (occurrence: US)
  Receive Date: 20091007
  Receipt Date: 20130314
  Transmission Date: 20140127
  Serious: Yes (Death, Hospitalization, Other)
  Sender: FDA-Public Use
  Company Number: US-CELGENEUS-163-21880-09072399

PATIENT
  Age: 60 Year
  Sex: Female
  Weight: 94.5 kg

DRUGS (9)
  1. REVLIMID [Suspect]
     Indication: PLASMA CELL MYELOMA
     Dosage: 10 MILLIGRAM
     Route: 048
     Dates: start: 20060202
  2. REVLIMID [Suspect]
     Dosage: 10 MILLIGRAM
     Route: 048
     Dates: start: 20090429, end: 20090707
  3. DOXIL [Suspect]
     Indication: PRODUCT USED FOR UNKNOWN INDICATION
     Route: 065
  4. VINCRISTINE [Suspect]
     Indication: PRODUCT USED FOR UNKNOWN INDICATION
     Route: 065
  5. DEXAMETHASONE [Suspect]
     Indication: PRODUCT USED FOR UNKNOWN INDICATION
     Route: 065
  6. MELPHALAN [Suspect]
     Indication: PLASMA CELL MYELOMA
     Route: 065
  7. AVELOX [Concomitant]
     Indication: PRODUCT USED FOR UNKNOWN INDICATION
     Route: 065
  8. NEXIUM [Concomitant]
     Indication: PRODUCT USED FOR UNKNOWN INDICATION
     Route: 065
  9. ETOPOSIDE [Concomitant]
     Indication: LYMPHOHISTIOCYTOSIS
     Route: 065

REACTIONS (7)
  - Cardio-respiratory arrest [Fatal]
  - Enterococcal sepsis [Fatal]
  - Hodgkin^s disease [Unknown]
  - Cholestasis [Unknown]
  - Subarachnoid haemorrhage [Unknown]
  - Multi-organ failure [Unknown]
  - Renal failure acute [Not Recovered/Not Resolved]
